FAERS Safety Report 7644041-X (Version None)
Quarter: 2011Q3

REPORT INFORMATION
  Report Type: 
  Country: None (occurrence: None)
  Receive Date: 20110729
  Receipt Date: 20110719
  Transmission Date: 20111222
  Serious: Yes (Hospitalization)
  Sender: FDA-Public Use
  Company Number: BE-ABBOTT-11P-013-0728675-00

PATIENT
  Sex: Female
  Weight: 82 kg

DRUGS (15)
  1. EPSIPAM [Concomitant]
     Indication: FIBROMYALGIA
     Dates: start: 20080606
  2. SIPRALEXA [Concomitant]
     Indication: FIBROMYALGIA
     Dates: start: 20080101, end: 20110626
  3. CYANOCOBALAMIN [Concomitant]
     Indication: VITAMIN B12 DEFICIENCY
     Dates: start: 20110101, end: 20110620
  4. OMEPRAZOLE [Concomitant]
     Indication: CROHN'S DISEASE
     Dates: start: 20090101, end: 20110522
  5. ZOLPIDEM [Concomitant]
     Indication: INSOMNIA
     Dates: end: 20110519
  6. FOLIC ACID [Concomitant]
     Indication: VITAMIN SUPPLEMENTATION
     Dates: start: 20100909, end: 20110626
  7. FOLIC ACID [Concomitant]
     Indication: DRUG THERAPY
  8. METHOTREXATE [Concomitant]
  9. HUMIRA [Suspect]
     Indication: CROHN'S DISEASE
     Dosage: BASELINE
     Route: 058
     Dates: start: 20080916, end: 20080916
  10. TRAMADOL HCL [Concomitant]
     Indication: NEURALGIA
     Dates: start: 20090507
  11. REDOMEX [Concomitant]
     Indication: NEURALGIA
     Dates: start: 20090101, end: 20110501
  12. HUMIRA [Suspect]
     Dosage: WEEK 2
     Route: 058
  13. METHOTREXATE [Concomitant]
     Indication: CROHN'S DISEASE
     Dates: start: 20050725, end: 20090317
  14. METHOTREXATE [Concomitant]
     Dates: start: 20090318, end: 20100101
  15. HUMIRA [Suspect]
     Route: 058
     Dates: end: 20110311

REACTIONS (4)
  - ARTERIAL THROMBOSIS [None]
  - PULMONARY EMBOLISM [None]
  - EMBOLISM [None]
  - CORONARY ARTERY EMBOLISM [None]
